FAERS Safety Report 17302283 (Version 1)
Quarter: 2020Q1

REPORT INFORMATION
  Report Type: Spontaneous
  Country: US (occurrence: US)
  Receive Date: 20200122
  Receipt Date: 20200122
  Transmission Date: 20200409
  Serious: Yes (Other)
  Sender: FDA-Public Use
  Company Number: US-BAYER-2020-001385

PATIENT
  Sex: Female

DRUGS (2)
  1. MIRENA [Suspect]
     Active Substance: LEVONORGESTREL
     Indication: CONTRACEPTION
     Dosage: 20 MCG/24HR, CONT
     Route: 015
     Dates: start: 201611, end: 20191227
  2. MIRENA [Suspect]
     Active Substance: LEVONORGESTREL
     Indication: MENORRHAGIA

REACTIONS (8)
  - Device dislocation [None]
  - Abdominal pain [None]
  - Medical device discomfort [None]
  - Adverse drug reaction [Recovered/Resolved]
  - Device defective [None]
  - Gastric disorder [None]
  - Complication of device removal [None]
  - Genital haemorrhage [None]

NARRATIVE: CASE EVENT DATE: 2016
